FAERS Safety Report 8583825-0 (Version None)
Quarter: 2012Q3

REPORT INFORMATION
  Report Type: 
  Country: None (occurrence: None)
  Receive Date: 20120810
  Receipt Date: 20120731
  Transmission Date: 20120928
  Serious: Yes (Death, Hospitalization, Disabling, Other)
  Sender: FDA-Public Use
  Company Number: US-009507513-1205USA04580

PATIENT

DRUGS (9)
  1. ALENDRONATE SODIUM [Suspect]
     Indication: OSTEOPOROSIS
     Dosage: 70 MG, UNK
     Route: 048
     Dates: start: 20080310, end: 20111103
  2. DIOVAN HCT [Concomitant]
     Indication: HYPERTENSION
     Dosage: UNK
     Dates: start: 20040101, end: 20111201
  3. VITAMINS (UNSPECIFIED) [Concomitant]
     Dosage: UNK
     Dates: start: 19970101, end: 20111205
  4. PRILOSEC [Concomitant]
     Dosage: UNK
     Dates: start: 20040101, end: 20111205
  5. FOSAMAX [Suspect]
     Dosage: 70 MG, UNK
     Route: 048
     Dates: start: 20080310, end: 20111103
  6. PROTONIX [Concomitant]
     Dosage: UNK
     Dates: start: 20060107, end: 20060201
  7. FOSAMAX PLUS D [Suspect]
     Dosage: 70 MG, UNK
     Route: 048
     Dates: start: 20060126, end: 20070713
  8. FOSAMAX [Suspect]
     Indication: OSTEOPENIA
  9. FOSAMAX [Suspect]
     Indication: OSTEOPOROSIS
     Dosage: 70 MG, UNK
     Route: 048
     Dates: start: 20070809, end: 20080201

REACTIONS (18)
  - DIABETES MELLITUS [None]
  - ANAEMIA [None]
  - CYSTITIS [None]
  - HIP FRACTURE [None]
  - LOW TURNOVER OSTEOPATHY [None]
  - CHEST PAIN [None]
  - CONSTIPATION [None]
  - STRESS FRACTURE [None]
  - INSOMNIA [None]
  - PNEUMONIA [None]
  - ARTHRITIS [None]
  - MULTI-ORGAN FAILURE [None]
  - BACTERIAL SEPSIS [None]
  - OSTEOPOROSIS [None]
  - FEMUR FRACTURE [None]
  - URINARY TRACT INFECTION [None]
  - INFECTION [None]
  - CHRONIC OBSTRUCTIVE PULMONARY DISEASE [None]
